FAERS Safety Report 19728478 (Version 1)
Quarter: 2021Q3

REPORT INFORMATION
  Report Type: Report from Study
  Country: US (occurrence: US)
  Receive Date: 20210820
  Receipt Date: 20210820
  Transmission Date: 20211014
  Serious: No
  Sender: FDA-Public Use
  Company Number: NVSC2021US180606

PATIENT
  Sex: Female

DRUGS (1)
  1. KESIMPTA [Suspect]
     Active Substance: OFATUMUMAB
     Indication: RELAPSING MULTIPLE SCLEROSIS
     Dosage: 20 MG(INJECTION)
     Route: 058

REACTIONS (6)
  - Chills [Recovered/Resolved]
  - Muscular weakness [Unknown]
  - Wrong technique in product usage process [Unknown]
  - Pain [Unknown]
  - Pyrexia [Recovered/Resolved]
  - Visual field defect [Recovered/Resolved]
